FAERS Safety Report 15232646 (Version 1)
Quarter: 2018Q3

REPORT INFORMATION
  Report Type: Spontaneous
  Country: US (occurrence: US)
  Receive Date: 20180802
  Receipt Date: 20180802
  Transmission Date: 20181010
  Serious: No
  Sender: FDA-Public Use
  Company Number: US-MYLANLABS-2018M1053358

PATIENT
  Age: 69 Year
  Sex: Male
  Weight: 113 kg

DRUGS (3)
  1. LIDOCAINE PATCH [Suspect]
     Active Substance: LIDOCAINE
     Indication: BACK PAIN
     Dosage: EVERY 12 HOURS ON AND 12 HOURS OFF
     Route: 003
     Dates: start: 20180702
  2. WARFARIN [Concomitant]
     Active Substance: WARFARIN
     Indication: PRODUCT USED FOR UNKNOWN INDICATION
     Dosage: 1 WHOLE TABLET 5 DAYS/WEEK
  3. WARFARIN [Concomitant]
     Active Substance: WARFARIN
     Dosage: 1.5 TABLETS 2 DAYS/WEEK

REACTIONS (4)
  - No adverse event [Unknown]
  - Off label use [Not Recovered/Not Resolved]
  - Product adhesion issue [Not Recovered/Not Resolved]
  - Product quality issue [Not Recovered/Not Resolved]

NARRATIVE: CASE EVENT DATE: 201807
